FAERS Safety Report 4448685-8 (Version None)
Quarter: 2004Q3

REPORT INFORMATION
  Report Type: 
  Country: None (occurrence: None)
  Receive Date: 20040909
  Receipt Date: 20040827
  Transmission Date: 20050211
  Serious: Yes (Other)
  Sender: FDA-Public Use
  Company Number: 2004061409

PATIENT
  Age: 52 Year
  Sex: Female

DRUGS (12)
  1. GABAPENTIN [Suspect]
     Indication: PAIN
     Dosage: 1800 MG (600 MG, 3 IN 1 D), ORAL
     Route: 048
  2. ROFECOXIB [Concomitant]
  3. DICLOFENAC SODIUM [Concomitant]
  4. DOMPERIDONE (DOMPERIDONE) [Concomitant]
  5. WARFARIN (WARFARIN) [Concomitant]
  6. CETIRIZINE HCL [Concomitant]
  7. LANSOPRAZOLE (LANOPRAZOLE) [Concomitant]
  8. ACETAMINOPHEN [Concomitant]
  9. MORPHINE SULFATE [Concomitant]
  10. FENTANYL [Concomitant]
  11. AMITRIPTYLINE HCL [Concomitant]
  12. CISPLATIN [Concomitant]

REACTIONS (1)
  - DRUG TOXICITY [None]
